FAERS Safety Report 23982193 (Version 1)
Quarter: 2024Q2

REPORT INFORMATION
  Report Type: Spontaneous
  Country: US (occurrence: None)
  Receive Date: 20240617
  Receipt Date: 20240617
  Transmission Date: 20240716
  Serious: Yes (Death, Hospitalization)
  Sender: FDA-Public Use
  Company Number: None

PATIENT
  Age: 61 Year
  Sex: Male

DRUGS (1)
  1. POMALYST [Suspect]
     Active Substance: POMALIDOMIDE
     Indication: Plasma cell myeloma
     Dosage: FREQUENCY : DAILY;?
     Route: 048
     Dates: start: 20240402, end: 20240506

REACTIONS (6)
  - Infusion related reaction [None]
  - Erythema [None]
  - Swelling [None]
  - Pain in extremity [None]
  - Febrile neutropenia [None]
  - Bacteraemia [None]

NARRATIVE: CASE EVENT DATE: 20240504
